FAERS Safety Report 5683287-7 (Version None)
Quarter: 2008Q1

REPORT INFORMATION
  Report Type: 
  Country: None (occurrence: None)
  Receive Date: 20080327
  Receipt Date: 20080312
  Transmission Date: 20080703
  Serious: Yes (Other)
  Sender: FDA-Public Use
  Company Number: US-GENENTECH-258344

PATIENT
  Age: 83 Year
  Sex: Male

DRUGS (3)
  1. LUCENTIS [Suspect]
     Indication: MACULAR DEGENERATION
     Dosage: UNK, UNK
  2. SORAFENIB [Suspect]
     Indication: MACULAR DEGENERATION
     Dosage: 200 MG, 3/WEEK
     Route: 048
  3. SORAFENIB [Suspect]
     Route: 048

REACTIONS (3)
  - DERMATITIS [None]
  - MACULAR OEDEMA [None]
  - VISUAL ACUITY REDUCED [None]
